FAERS Safety Report 8087097-5 (Version None)
Quarter: 2012Q1

REPORT INFORMATION
  Report Type: 
  Country: None (occurrence: None)
  Receive Date: 20120128
  Receipt Date: 20110517
  Transmission Date: 20120608
  Serious: No
  Sender: FDA-Public Use
  Company Number: US-ABBOTT-11P-163-0726757-00

PATIENT
  Sex: Male
  Weight: 79.45 kg

DRUGS (5)
  1. LEVOTHYROXINE SODIUM [Concomitant]
     Indication: HYPOTHYROIDISM
  2. HUMIRA [Suspect]
     Indication: CROHN'S DISEASE
  3. FLOMAX [Concomitant]
     Indication: PROSTATIC DISORDER
  4. DILTIAZEM HCL [Concomitant]
     Indication: ARRHYTHMIA SUPRAVENTRICULAR
  5. MULTI-VITAMIN [Concomitant]
     Indication: VITAMIN SUPPLEMENTATION

REACTIONS (8)
  - MUSCULOSKELETAL PAIN [None]
  - ARTHRITIS [None]
  - OEDEMA PERIPHERAL [None]
  - MOVEMENT DISORDER [None]
  - COUGH [None]
  - PAIN IN EXTREMITY [None]
  - PRODUCTIVE COUGH [None]
  - GRIP STRENGTH DECREASED [None]
